FAERS Safety Report 18361560 (Version 1)
Quarter: 2020Q4

REPORT INFORMATION
  Report Type: Report from Study
  Country: FR (occurrence: FR)
  Receive Date: 20201008
  Receipt Date: 20201008
  Transmission Date: 20210114
  Serious: Yes (Hospitalization)
  Sender: FDA-Public Use
  Company Number: NVSC2020FR112642

PATIENT
  Age: 12 Year
  Sex: Male
  Weight: 49 kg

DRUGS (21)
  1. BACTRIM [Concomitant]
     Active Substance: SULFAMETHOXAZOLE\TRIMETHOPRIM
     Indication: PROPHYLAXIS
     Dosage: 800 MG
     Route: 048
     Dates: start: 20200309
  2. PHOCYTAN [Concomitant]
     Active Substance: .ALPHA.-GLUCOSE-1-PHOSPHATE
     Indication: RENAL TUBULAR DISORDER
     Dosage: 19.8 MMOL, 3 IN 1 D
     Route: 048
     Dates: start: 20200309
  3. CEFIXIME. [Concomitant]
     Active Substance: CEFIXIME
     Indication: PROPHYLAXIS
     Dosage: 200 MG
     Route: 048
     Dates: start: 20200312
  4. TOPOTECAN [Suspect]
     Active Substance: TOPOTECAN HYDROCHLORIDE
     Dosage: 0.75 MG/M2 (DAYS 1-4 OF EACH 21-DAY CYCLE)
     Route: 042
     Dates: start: 20200622
  5. UROMITEXAN [Concomitant]
     Active Substance: MESNA
     Indication: PROPHYLAXIS URINARY TRACT INFECTION
     Dosage: 349.25 MG, QD
     Route: 042
     Dates: start: 20200314
  6. AUGMENTIN [Concomitant]
     Active Substance: AMOXICILLIN\CLAVULANATE POTASSIUM
     Indication: PRODUCT USED FOR UNKNOWN INDICATION
     Dosage: UNK
     Route: 065
  7. CYCLOPHOSPHAMIDE. [Suspect]
     Active Substance: CYCLOPHOSPHAMIDE
     Indication: REFRACTORY CANCER
     Dosage: 250 MG/M2 (DAYS 1-4 OF 21-DAY CYCLE)
     Route: 042
     Dates: start: 20200622
  8. MESNA. [Concomitant]
     Active Substance: MESNA
     Indication: PROPHYLAXIS
     Dosage: 349.25 MG
     Route: 042
     Dates: start: 20200314
  9. ALLOPURINOL. [Concomitant]
     Active Substance: ALLOPURINOL
     Dosage: 200 MG
     Route: 065
     Dates: start: 20200312, end: 20200315
  10. ESOMEPRAZOLE. [Concomitant]
     Active Substance: ESOMEPRAZOLE MAGNESIUM
     Indication: PROPHYLAXIS
     Dosage: 20 MG, QD
     Route: 048
     Dates: start: 20200309
  11. CYCLOPHOSPHAMIDE. [Suspect]
     Active Substance: CYCLOPHOSPHAMIDE
     Indication: EWING^S SARCOMA
     Dosage: 250 MG/M2 (DAYS 1-5 EACH 21-DAY CYCLE)
     Route: 042
     Dates: start: 20200314, end: 20200531
  12. METHYLPREDNISOLONE. [Concomitant]
     Active Substance: METHYLPREDNISOLONE
     Indication: PROPHYLAXIS OF NAUSEA AND VOMITING
     Dosage: 5 MG, QD
     Route: 042
     Dates: start: 20200314
  13. CEFTRIAXONE. [Concomitant]
     Active Substance: CEFTRIAXONE
     Indication: PRODUCT USED FOR UNKNOWN INDICATION
     Dosage: UNK
     Route: 065
  14. SODIUM PHOSPHATE [Concomitant]
     Active Substance: SODIUM PHOSPHATE
     Indication: STOMATITIS
     Dosage: 1 G (1 IN 1D)
     Route: 048
     Dates: start: 20200402
  15. LENOGRASTIM [Concomitant]
     Active Substance: LENOGRASTIM
     Indication: PROPHYLAXIS
     Dosage: 34 MUI, 1 IN 21D
     Route: 042
     Dates: start: 20200319
  16. VANCOMYCINE [Concomitant]
     Active Substance: VANCOMYCIN
     Indication: PRODUCT USED FOR UNKNOWN INDICATION
     Dosage: UNK
     Route: 065
  17. DEXTROSE. [Concomitant]
     Active Substance: DEXTROSE
     Indication: PROPHYLAXIS
     Dosage: 4500 ML
     Route: 042
     Dates: start: 20200312, end: 20200318
  18. TOPOTECAN [Suspect]
     Active Substance: TOPOTECAN HYDROCHLORIDE
     Indication: REFRACTORY CANCER
     Dosage: 0.75 MG/M2 (DAYS 1-5 OF EACH 21-DAY CYCLE)
     Route: 042
     Dates: start: 20200314, end: 20200531
  19. ONDANSETRON [Concomitant]
     Active Substance: ONDANSETRON
     Indication: PROPHYLAXIS OF NAUSEA AND VOMITING
     Dosage: 47 MG, QD
     Route: 042
     Dates: start: 20200314
  20. ALLOPURINOL. [Concomitant]
     Active Substance: ALLOPURINOL
     Indication: PROPHYLAXIS
     Dosage: 100 MG
     Route: 048
     Dates: start: 20200313, end: 20200319
  21. AMIKACINE [Concomitant]
     Active Substance: AMIKACIN
     Indication: PRODUCT USED FOR UNKNOWN INDICATION
     Dosage: UNK
     Route: 065

REACTIONS (10)
  - Asthenia [Recovered/Resolved]
  - Febrile neutropenia [Not Recovered/Not Resolved]
  - Pyrexia [Recovered/Resolved]
  - Constipation [Unknown]
  - Anal fissure [Unknown]
  - Febrile neutropenia [Recovered/Resolved]
  - Rhinovirus infection [Recovered/Resolved]
  - Pharyngitis [Unknown]
  - Nasopharyngitis [Unknown]
  - Pyrexia [Not Recovered/Not Resolved]

NARRATIVE: CASE EVENT DATE: 20200324
